FAERS Safety Report 6540747-4 (Version None)
Quarter: 2010Q1

REPORT INFORMATION
  Report Type: 
  Country: None (occurrence: None)
  Receive Date: 20100118
  Receipt Date: 20100108
  Transmission Date: 20100710
  Serious: Yes (Hospitalization)
  Sender: FDA-Public Use
  Company Number: JP-NOVOPROD-302845

PATIENT
  Age: 78 Year
  Sex: Female

DRUGS (1)
  1. NOVOLIN R [Suspect]
     Indication: DRUG USE FOR UNKNOWN INDICATION
     Dosage: 10 IU, QD
     Route: 058
     Dates: end: 20091229

REACTIONS (1)
  - PNEUMONIA [None]
